FAERS Safety Report 25325041 (Version 1)
Quarter: 2025Q2

REPORT INFORMATION
  Report Type: Spontaneous
  Country: US (occurrence: US)
  Receive Date: 20250516
  Receipt Date: 20250516
  Transmission Date: 20250717
  Serious: Yes (Other)
  Sender: TEVA
  Company Number: US-TEVA-VS-3330255

PATIENT

DRUGS (1)
  1. AMLODIPINE BESYLATE [Suspect]
     Active Substance: AMLODIPINE BESYLATE
     Indication: Hypertension
     Route: 048

REACTIONS (9)
  - Hypertension [Unknown]
  - Dizziness [Unknown]
  - Labile hypertension [Unknown]
  - Wrong technique in product usage process [Unknown]
  - Hypotension [Unknown]
  - Impaired work ability [Unknown]
  - Loss of personal independence in daily activities [Unknown]
  - Incorrect dose administered [Unknown]
  - Inappropriate schedule of product administration [Unknown]
